FAERS Safety Report 6834715-2 (Version None)
Quarter: 2010Q3

REPORT INFORMATION
  Report Type: 
  Country: None (occurrence: None)
  Receive Date: 20100712
  Receipt Date: 20070530
  Transmission Date: 20110219
  Serious: No
  Sender: FDA-Public Use
  Company Number: US-PFIZER INC-2007032306

PATIENT
  Sex: Male
  Weight: 97 kg

DRUGS (5)
  1. CHANTIX [Suspect]
     Indication: SMOKING CESSATION THERAPY
     Dates: start: 20070101, end: 20070101
  2. CHANTIX [Suspect]
  3. ACETYLSALICYLIC ACID [Concomitant]
     Indication: BLOOD PRESSURE ABNORMAL
  4. ANTITHROMBOTIC AGENTS [Concomitant]
     Indication: BLOOD PRESSURE ABNORMAL
  5. ALL OTHER THERAPEUTIC PRODUCTS [Concomitant]
     Indication: BLOOD PRESSURE ABNORMAL

REACTIONS (5)
  - BLOOD PRESSURE INCREASED [None]
  - FATIGUE [None]
  - FEELING ABNORMAL [None]
  - HEART RATE INCREASED [None]
  - NAUSEA [None]
